FAERS Safety Report 5707688-3 (Version None)
Quarter: 2008Q2

REPORT INFORMATION
  Report Type: 
  Country: None (occurrence: None)
  Receive Date: 20080415
  Receipt Date: 20080318
  Transmission Date: 20081010
  Serious: Yes (Other)
  Sender: FDA-Public Use
  Company Number: APP200800217

PATIENT
  Age: 66 Year
  Sex: Male
  Weight: 88.63 kg

DRUGS (10)
  1. MIDAZOLAM HYDROCHLORIDE [Suspect]
     Indication: SEDATION
     Dosage: ONCE, INTRAVENOUS
     Route: 042
     Dates: start: 20080229, end: 20080229
  2. TEMOZOLOMIDE [Suspect]
     Indication: SEDATION
     Dosage: 150 MG/M2, (DAYS 1-2 OF A 28- DAY CYCLE), ORAL
     Route: 048
     Dates: start: 20080229, end: 20080229
  3. TEMOZOLOMIDE [Suspect]
     Indication: GLIOBLASTOMA MULTIFORME
     Dosage: 150 MG/M2, (DAYS 1-2 OF A 28 DAY CYCLE), ORAL
     Route: 048
     Dates: start: 20080229, end: 20080304
  4. FENTANYL [Suspect]
     Indication: SEDATION
     Dosage: ONCE, INTRAVENOUS
     Route: 042
     Dates: start: 20080229, end: 20080229
  5. GUDOLINIUM CONTRACT [Suspect]
     Indication: NUCLEAR MAGNETIC RESONANCE IMAGING
     Dosage: ONCE
     Dates: start: 20080229, end: 20080229
  6. DILANTIN [Concomitant]
  7. ZOFRAN [Concomitant]
  8. LISINOPRIL [Concomitant]
  9. RANITIDINE [Concomitant]
  10. TEMODAR [Concomitant]

REACTIONS (7)
  - ERYTHEMA [None]
  - PROCEDURAL COMPLICATION [None]
  - RASH MACULO-PAPULAR [None]
  - RASH PRURITIC [None]
  - SUPERIOR VENA CAVAL OCCLUSION [None]
  - SWELLING FACE [None]
  - VIRAL INFECTION [None]
